FAERS Safety Report 6746917-4 (Version None)
Quarter: 2010Q2

REPORT INFORMATION
  Report Type: 
  Country: None (occurrence: None)
  Receive Date: 20100528
  Receipt Date: 20091029
  Transmission Date: 20101027
  Serious: No
  Sender: FDA-Public Use
  Company Number: US-ASTRAZENECA-2009SE31801

PATIENT

DRUGS (22)
  1. PRILOSEC OTC [Suspect]
     Route: 048
  2. PRILOSEC OTC [Suspect]
     Route: 048
  3. PLAVIX [Suspect]
     Indication: PERIPHERAL ARTERIAL OCCLUSIVE DISEASE
     Route: 048
  4. ROSUVASTATIN [Concomitant]
     Route: 048
  5. FENOFIBRATE [Concomitant]
  6. LEVOTHYROXINE SODIUM [Concomitant]
     Route: 048
  7. HYDROCHLOROTHIAZIDE [Concomitant]
  8. MELOXICAM [Concomitant]
     Route: 048
  9. AMLODIPINE [Concomitant]
     Route: 048
  10. LOSARTAN POTASSIUM [Concomitant]
     Route: 048
  11. ASPIRIN [Concomitant]
  12. LORATADINE [Concomitant]
  13. METOPROLOL [Concomitant]
     Route: 048
  14. TEMAZEPAM [Concomitant]
     Route: 048
  15. VITAMIN B COMPLEX CAP [Concomitant]
     Route: 048
  16. FISH OIL [Concomitant]
     Route: 048
  17. VITAMIN D [Concomitant]
     Route: 048
  18. FOLIC ACID [Concomitant]
  19. CALCIUM CARBONATE [Concomitant]
  20. GLUCOSAMINE + CHONDROITIN [Concomitant]
  21. IBUPROFEN [Concomitant]
     Route: 048
  22. PARACETAMOL [Concomitant]
     Dosage: AS NEEDED
     Route: 048

REACTIONS (5)
  - CONDITION AGGRAVATED [None]
  - INAPPROPRIATE SCHEDULE OF DRUG ADMINISTRATION [None]
  - LIMB DISCOMFORT [None]
  - MUSCULOSKELETAL DISCOMFORT [None]
  - MUSCULOSKELETAL PAIN [None]
